FAERS Safety Report 10801161 (Version 1)
Quarter: 2015Q1

REPORT INFORMATION
  Report Type: Report from Study
  Country: US (occurrence: US)
  Receive Date: 20150216
  Receipt Date: 20150216
  Transmission Date: 20150721
  Serious: Yes (Hospitalization)
  Sender: FDA-Public Use
  Company Number: US-MERCK-1502USA004220

PATIENT
  Age: 70 Year
  Sex: Male
  Weight: 93 kg

DRUGS (1)
  1. VORINOSTAT [Suspect]
     Active Substance: VORINOSTAT
     Indication: HEAD AND NECK CANCER
     Dosage: 400 MG, TIW (MONDAY WEDNESDAY AND FRIDAY)
     Route: 048
     Dates: start: 20141208

REACTIONS (2)
  - Pyrexia [Unknown]
  - Cellulitis [Unknown]

NARRATIVE: CASE EVENT DATE: 20150205
